FAERS Safety Report 8506890-5 (Version None)
Quarter: 2012Q3

REPORT INFORMATION
  Report Type: 
  Country: None (occurrence: None)
  Receive Date: 20120703
  Receipt Date: 20120629
  Transmission Date: 20120928
  Serious: Yes (Death, Other)
  Sender: FDA-Public Use
  Company Number: 2011SP049341

PATIENT
  Age: 31 Year
  Sex: Female
  Weight: 99.7913 kg

DRUGS (1)
  1. NUVARING [Suspect]
     Indication: CONTRACEPTION
     Dates: start: 20090401, end: 20091023

REACTIONS (8)
  - FALL [None]
  - CARDIO-RESPIRATORY ARREST [None]
  - DEEP VEIN THROMBOSIS [None]
  - PAIN [None]
  - PULMONARY EMBOLISM [None]
  - SINUS TACHYCARDIA [None]
  - PULSE ABSENT [None]
  - LOSS OF CONSCIOUSNESS [None]
